FAERS Safety Report 6165533-9 (Version None)
Quarter: 2009Q2

REPORT INFORMATION
  Report Type: 
  Country: None (occurrence: None)
  Receive Date: 20090423
  Receipt Date: 20080710
  Transmission Date: 20091009
  Serious: No
  Sender: FDA-Public Use
  Company Number: US-BRISTOL-MYERS SQUIBB COMPANY-14170161

PATIENT
  Age: 52 Year
  Sex: Male

DRUGS (4)
  1. CARBOPLATIN [Suspect]
     Indication: MESOTHELIOMA
     Dosage: DRUG INTERRUPTED: ON MAY-2007 DRUG RESTARTED: ON JAN-2008 LAST DOSE: ON APR-2008
     Route: 065
     Dates: start: 20070101
  2. ALIMTA [Suspect]
     Indication: MESOTHELIOMA
     Dosage: DRUG INTERRUPTED: ON MAY-2007 RESTARTED: ON JAN 2008 ONGOING
     Route: 065
     Dates: start: 20070101
  3. VITAMIN B-12 [Concomitant]
  4. FOLIC ACID [Concomitant]

REACTIONS (7)
  - FATIGUE [None]
  - FLUSHING [None]
  - HYPERSENSITIVITY [None]
  - NAUSEA [None]
  - PARAESTHESIA [None]
  - RASH [None]
  - VOMITING [None]
